FAERS Safety Report 9864426 (Version 3)
Quarter: 2014Q2

REPORT INFORMATION
  Report Type: Spontaneous
  Country: US (occurrence: US)
  Receive Date: 20140203
  Receipt Date: 20140402
  Transmission Date: 20141212
  Serious: No
  Sender: FDA-Public Use
  Company Number: US-AMGEN-USASP2014002459

PATIENT
  Age: 69 Year
  Sex: Female

DRUGS (5)
  1. ENBREL [Suspect]
     Indication: RHEUMATOID ARTHRITIS
     Dosage: 50 MG, QWK
     Route: 065
     Dates: start: 20131213
  2. ENBREL [Suspect]
     Route: 065
  3. ENBREL [Suspect]
     Route: 065
  4. ARAVA [Concomitant]
     Dosage: 10 MG, FOR TWO MONTHS
  5. PREDNISONE [Concomitant]
     Dosage: ONE HALF TABLET EVERY FRIDAY

REACTIONS (6)
  - Chronic obstructive pulmonary disease [Recovered/Resolved]
  - Injection site erythema [Recovered/Resolved]
  - Injection site reaction [Not Recovered/Not Resolved]
  - Injection site pruritus [Recovered/Resolved]
  - Injection site discolouration [Recovered/Resolved]
  - Injection site swelling [Recovered/Resolved]
